FAERS Safety Report 17907664 (Version 1)
Quarter: 2020Q2

REPORT INFORMATION
  Report Type: Spontaneous
  Country: JP (occurrence: JP)
  Receive Date: 20200617
  Receipt Date: 20200617
  Transmission Date: 20200714
  Serious: Yes (Death)
  Sender: FDA-Public Use
  Company Number: JP-ROCHE-2623252

PATIENT
  Age: 57 Year
  Sex: Male

DRUGS (5)
  1. METHYLPREDNISOLONE. [Concomitant]
     Active Substance: METHYLPREDNISOLONE
     Indication: COVID-19 PNEUMONIA
     Dosage: DOSAGE IS UNCERTAIN.
     Route: 065
     Dates: start: 202003
  2. ACTEMRA [Suspect]
     Active Substance: TOCILIZUMAB
     Indication: COVID-19 PNEUMONIA
     Route: 041
     Dates: start: 20200415, end: 20200415
  3. ALVESCO [Concomitant]
     Active Substance: CICLESONIDE
     Indication: COVID-19 PNEUMONIA
     Dosage: DOSAGE IS UNCERTAIN.
     Route: 065
     Dates: start: 202003
  4. ELASPOL [Concomitant]
     Active Substance: SIVELESTAT SODIUM
     Indication: COVID-19 PNEUMONIA
     Dosage: DOSAGE IS UNCERTAIN.
     Route: 065
     Dates: start: 202003
  5. FUTHAN [Concomitant]
     Active Substance: NAFAMOSTAT MESYLATE
     Indication: COVID-19 PNEUMONIA
     Dosage: DOSAGE IS UNCERTAIN.
     Route: 065
     Dates: start: 20200330

REACTIONS (3)
  - COVID-19 pneumonia [Fatal]
  - Intentional product use issue [Unknown]
  - Off label use [Unknown]

NARRATIVE: CASE EVENT DATE: 20200415
